FAERS Safety Report 6887730-7 (Version None)
Quarter: 2010Q3

REPORT INFORMATION
  Report Type: 
  Country: None (occurrence: None)
  Receive Date: 20100720
  Receipt Date: 20100708
  Transmission Date: 20110219
  Serious: Yes (Other)
  Sender: FDA-Public Use
  Company Number: AECAN201000258

PATIENT
  Age: 58 Year
  Sex: Male

DRUGS (1)
  1. IGIVNEX [Suspect]
     Indication: NEUROLOGICAL SYMPTOM
     Dosage: ; IV
     Route: 042

REACTIONS (1)
  - DERMATITIS EXFOLIATIVE [None]
